FAERS Safety Report 18770017 (Version 14)
Quarter: 2021Q3

REPORT INFORMATION
  Report Type: Spontaneous
  Country: US (occurrence: US)
  Receive Date: 20210121
  Receipt Date: 20210809
  Transmission Date: 20211014
  Serious: No
  Sender: FDA-Public Use
  Company Number: US-PHARMING-PHAUS2021000034

PATIENT

DRUGS (12)
  1. TAKHZYRO [Concomitant]
     Active Substance: LANADELUMAB-FLYO
     Indication: PRODUCT USED FOR UNKNOWN INDICATION
  2. RUCONEST [Suspect]
     Active Substance: HUMAN C1-ESTERASE INHIBITOR
     Indication: HEREDITARY ANGIOEDEMA
     Dosage: 4200 IU, TWO TO THREE TIMES A DAY
     Route: 042
     Dates: start: 20170128
  3. RUCONEST [Suspect]
     Active Substance: HUMAN C1-ESTERASE INHIBITOR
     Indication: MENSTRUAL DISORDER
     Dosage: 4200 IU, TWO TO THREE TIMES A DAY
     Route: 042
     Dates: start: 20170128
  4. RUCONEST [Suspect]
     Active Substance: HUMAN C1-ESTERASE INHIBITOR
     Indication: FEMALE REPRODUCTIVE TRACT DISORDER
     Dosage: 4200 IU, TWO?THREE TIMES A DAY
     Route: 042
     Dates: start: 20170128
  5. RUCONEST [Suspect]
     Active Substance: HUMAN C1-ESTERASE INHIBITOR
     Indication: HEREDITARY ANGIOEDEMA
     Dosage: 4200 IU, TWO TO THREE TIMES DAILY PRN
     Dates: start: 20170128
  6. RUCONEST [Suspect]
     Active Substance: HUMAN C1-ESTERASE INHIBITOR
     Dosage: 4200 IU, TWO TO THREE TIMES A DAY
     Route: 042
     Dates: start: 20170128
  7. RUCONEST [Suspect]
     Active Substance: HUMAN C1-ESTERASE INHIBITOR
     Dosage: 4200 IU, TWO TO THREE TIMES A DAY
     Route: 042
     Dates: start: 20170128
  8. RUCONEST [Suspect]
     Active Substance: HUMAN C1-ESTERASE INHIBITOR
     Dosage: 4200 IU, TWO TO THREE TIMES A DAY
     Route: 042
     Dates: start: 20170128
  9. RUCONEST [Suspect]
     Active Substance: HUMAN C1-ESTERASE INHIBITOR
     Dosage: 4200 IU, TWO TO THREE TIMES A DAY
     Route: 042
     Dates: start: 20170128
  10. RUCONEST [Suspect]
     Active Substance: HUMAN C1-ESTERASE INHIBITOR
     Indication: ANAEMIA
     Dosage: 4200 IU, TWO TO THREE TIMES DAILY
     Route: 042
     Dates: start: 20170128
  11. RUCONEST [Suspect]
     Active Substance: HUMAN C1-ESTERASE INHIBITOR
     Dosage: 4200 IU, TWO TO THREE TIMES A DAY
     Route: 042
     Dates: start: 20170128
  12. RUCONEST [Suspect]
     Active Substance: HUMAN C1-ESTERASE INHIBITOR
     Dosage: 4200 IU, TWO TO THREE TIMES A DAY
     Route: 042
     Dates: start: 20170128

REACTIONS (4)
  - Product use in unapproved indication [Unknown]
  - Intentional product use issue [Unknown]
  - Overdose [Unknown]
  - Pharyngeal swelling [Recovered/Resolved]

NARRATIVE: CASE EVENT DATE: 20210105
